FAERS Safety Report 23267974 (Version 7)
Quarter: 2024Q2

REPORT INFORMATION
  Report Type: Spontaneous
  Country: US (occurrence: US)
  Receive Date: 20231206
  Receipt Date: 20240528
  Transmission Date: 20240716
  Serious: Yes (Hospitalization, Other)
  Sender: FDA-Public Use
  Company Number: US-SA-SAC20231205000511

PATIENT
  Age: 58 Year
  Sex: Male

DRUGS (9)
  1. ALPROLIX [Suspect]
     Active Substance: EFTRENONACOG ALFA
     Indication: Haemorrhage
     Dosage: 6800 U (+/-10%), QW
     Route: 042
  2. ALPROLIX [Suspect]
     Active Substance: EFTRENONACOG ALFA
     Indication: Haemorrhage
     Dosage: 6800 U (+/-10%), QW
     Route: 042
  3. ALPROLIX [Suspect]
     Active Substance: EFTRENONACOG ALFA
     Dosage: 6800 U (+/-10%), PRN
     Route: 042
  4. ALPROLIX [Suspect]
     Active Substance: EFTRENONACOG ALFA
     Dosage: 6800 U (+/-10%), PRN
     Route: 042
  5. ALPROLIX [Suspect]
     Active Substance: EFTRENONACOG ALFA
     Dosage: 7000 U (+/-10%), TWICE A WEEK FOR PREVENTION AND AS NEEDED
     Route: 042
  6. ALPROLIX [Suspect]
     Active Substance: EFTRENONACOG ALFA
     Dosage: 7000 U (+/-10%), TWICE A WEEK FOR PREVENTION AND AS NEEDED
     Route: 042
  7. ALPROLIX [Suspect]
     Active Substance: EFTRENONACOG ALFA
     Dosage: 7000 U (+/-10%), TWICE A WEEK FOR PREVENTION AND AS NEEDED
     Route: 042
  8. ALPROLIX [Suspect]
     Active Substance: EFTRENONACOG ALFA
     Dosage: 7000 U (+/-10%), TWICE A WEEK FOR PREVENTION AND AS NEEDED
     Route: 042
  9. ALPHANINE [FACTOR IX] [Concomitant]
     Dosage: UNK

REACTIONS (14)
  - Pneumonia [Unknown]
  - Cardiac disorder [Unknown]
  - Catheterisation cardiac [Unknown]
  - Viral infection [Unknown]
  - Limb injury [Not Recovered/Not Resolved]
  - Wound [Not Recovered/Not Resolved]
  - Haemorrhage [Not Recovered/Not Resolved]
  - Poor venous access [Unknown]
  - Epistaxis [Unknown]
  - Procedural haemorrhage [Unknown]
  - Injection site haemorrhage [Unknown]
  - Spontaneous haemorrhage [Recovered/Resolved]
  - Limb injury [Recovered/Resolved]
  - Haemorrhage [Unknown]

NARRATIVE: CASE EVENT DATE: 20231107
